FAERS Safety Report 12724133 (Version 1)
Quarter: 2016Q3

REPORT INFORMATION
  Report Type: Spontaneous
  Country: BE (occurrence: BE)
  Receive Date: 20160908
  Receipt Date: 20160908
  Transmission Date: 20161109
  Serious: Yes (Other)
  Sender: FDA-Public Use
  Company Number: BE-NOVOPROD-466051

PATIENT
  Age: 60 Year
  Sex: Male
  Weight: 89 kg

DRUGS (1)
  1. VICTOZA [Suspect]
     Active Substance: LIRAGLUTIDE
     Indication: TYPE 2 DIABETES MELLITUS
     Dosage: 1.2 MG, QD
     Route: 065

REACTIONS (2)
  - Weight decreased [Unknown]
  - Retinal aneurysm [Unknown]

NARRATIVE: CASE EVENT DATE: 201102
